FAERS Safety Report 15640052 (Version 2)
Quarter: 2018Q4

REPORT INFORMATION
  Report Type: Spontaneous
  Country: JP (occurrence: JP)
  Receive Date: 20181120
  Receipt Date: 20181212
  Transmission Date: 20190205
  Serious: Yes (Death)
  Sender: FDA-Public Use
  Company Number: JP-ELI_LILLY_AND_COMPANY-JP201811007691

PATIENT
  Age: 75 Year
  Sex: Female

DRUGS (9)
  1. OPSUMIT [Concomitant]
     Active Substance: MACITENTAN
  2. AZOSEMIDE [Concomitant]
     Active Substance: AZOSEMIDE
  3. BERASUS [Concomitant]
     Active Substance: BERAPROST SODIUM
  4. TOCOPHERYL NICOTINATE [Concomitant]
     Active Substance: TOCOPHERYL NICOTINATE, D-.ALPHA.
  5. WARFARIN [Concomitant]
     Active Substance: WARFARIN
  6. ADCIRCA [Suspect]
     Active Substance: TADALAFIL
     Indication: PRODUCT USED FOR UNKNOWN INDICATION
     Dosage: 40 MG, DAILY
     Route: 048
     Dates: start: 20141205, end: 20181112
  7. METHYCOBAL [Concomitant]
     Active Substance: METHYLCOBALAMIN
  8. LANSOPRAZOL [Concomitant]
     Active Substance: LANSOPRAZOLE
  9. ZETIA [Concomitant]
     Active Substance: EZETIMIBE

REACTIONS (1)
  - Oesophageal varices haemorrhage [Fatal]

NARRATIVE: CASE EVENT DATE: 201810
